FAERS Safety Report 6148922-8 (Version None)
Quarter: 2009Q2

REPORT INFORMATION
  Report Type: 
  Country: None (occurrence: None)
  Receive Date: 20090407
  Receipt Date: 20090327
  Transmission Date: 20091009
  Serious: Yes (Other)
  Sender: FDA-Public Use
  Company Number: 189680USA

PATIENT
  Age: 29 Year
  Sex: Female

DRUGS (1)
  1. CLARAVIS [Suspect]
     Dosage: 120 MG (40 MG, 3 IN 1 D) ORAL
     Route: 048
     Dates: start: 20081212

REACTIONS (1)
  - PREGNANCY TEST FALSE POSITIVE [None]
